FAERS Safety Report 21916116 (Version 2)
Quarter: 2023Q1

REPORT INFORMATION
  Report Type: Spontaneous
  Country: US (occurrence: None)
  Receive Date: 20230126
  Receipt Date: 20230201
  Transmission Date: 20230417
  Serious: Yes (Other)
  Sender: FDA-Public Use
  Company Number: 2023A016987

PATIENT
  Sex: Male

DRUGS (9)
  1. SEROQUEL [Suspect]
     Active Substance: QUETIAPINE FUMARATE
     Indication: Depression
     Route: 048
  2. ZESTORETIC [Concomitant]
     Active Substance: HYDROCHLOROTHIAZIDE\LISINOPRIL
     Route: 048
  3. METFORMIN [Concomitant]
     Active Substance: METFORMIN HYDROCHLORIDE
  4. TIZANIDINE [Concomitant]
     Active Substance: TIZANIDINE
  5. FENOFIBRATE [Concomitant]
     Active Substance: FENOFIBRATE
  6. METOPROLOL [Concomitant]
     Active Substance: METOPROLOL
  7. LISINOPRIL [Concomitant]
     Active Substance: LISINOPRIL
  8. HYDROCHLOROTHIAZIDE [Concomitant]
     Active Substance: HYDROCHLOROTHIAZIDE
  9. VITAMIN D [Concomitant]
     Active Substance: VITAMIN D NOS

REACTIONS (40)
  - Road traffic accident [Unknown]
  - Basal cell carcinoma [Unknown]
  - Optic atrophy [Unknown]
  - Urinary incontinence [Unknown]
  - Cyst [Unknown]
  - Cartilage atrophy [Unknown]
  - Multiple sclerosis [Unknown]
  - Meniscus injury [Unknown]
  - Sports injury [Unknown]
  - Glucose tolerance impaired [Unknown]
  - Myopia [Unknown]
  - Exostosis [Unknown]
  - Vitamin B complex deficiency [Unknown]
  - Migraine [Unknown]
  - Stress [Unknown]
  - Sensitivity to weather change [Unknown]
  - Gait disturbance [Unknown]
  - Insomnia [Unknown]
  - Hypertension [Unknown]
  - Swelling [Unknown]
  - Caffeine allergy [Unknown]
  - Vitamin D deficiency [Unknown]
  - Type 2 diabetes mellitus [Unknown]
  - Multiple sclerosis relapse [Unknown]
  - Blood urine present [Unknown]
  - Candida infection [Unknown]
  - Carpal tunnel syndrome [Unknown]
  - Urinary tract infection [Unknown]
  - Feeling abnormal [Unknown]
  - Hypoaesthesia [Unknown]
  - Myalgia [Unknown]
  - Depression [Unknown]
  - Cognitive disorder [Unknown]
  - Diarrhoea [Unknown]
  - Amnesia [Unknown]
  - Asthenia [Unknown]
  - Drug hypersensitivity [Unknown]
  - Tremor [Unknown]
  - Urinary hesitation [Unknown]
  - Fatigue [Unknown]
